FAERS Safety Report 24798881 (Version 1)
Quarter: 2025Q1

REPORT INFORMATION
  Report Type: Spontaneous
  Country: US (occurrence: US)
  Receive Date: 20250102
  Receipt Date: 20250102
  Transmission Date: 20250409
  Serious: Yes (Other)
  Sender: BOEHRINGER INGELHEIM
  Company Number: US-BoehringerIngelheim-2024-BI-071041

PATIENT
  Age: 58 Year
  Sex: Female

DRUGS (1)
  1. MELOXICAM [Suspect]
     Active Substance: MELOXICAM
     Indication: Osteoarthritis

REACTIONS (6)
  - Diaphragmatic disorder [Unknown]
  - Small intestine ulcer [Unknown]
  - Small intestinal stenosis [Unknown]
  - Small intestinal obstruction [Unknown]
  - Helicobacter gastritis [Unknown]
  - Normocytic anaemia [Unknown]
